FAERS Safety Report 16454176 (Version 7)
Quarter: 2019Q4

REPORT INFORMATION
  Report Type: Spontaneous
  Country: US (occurrence: US)
  Receive Date: 20190619
  Receipt Date: 20191023
  Transmission Date: 20200122
  Serious: No
  Sender: FDA-Public Use
  Company Number: US-PFIZER INC-2019261611

PATIENT
  Age: 15 Year
  Sex: Female

DRUGS (2)
  1. SUTENT [Suspect]
     Active Substance: SUNITINIB MALATE
     Dosage: 50 MG (1 CAPSULE) , CYCLIC (ONCE DAILY FOR 4 WEEKS ON TREATMENT, FOLLOWED BY 2 WEEKS OFF)
     Route: 048
     Dates: start: 20190827
  2. SUTENT [Suspect]
     Active Substance: SUNITINIB MALATE
     Indication: GASTROINTESTINAL STROMAL TUMOUR
     Dosage: 50 MG (1 CAPSULE) , CYCLIC (ONCE DAILY FOR 4 WEEKS ON TREATMENT, FOLLOWED BY 2 WEEKS OFF)
     Route: 048
     Dates: start: 20190531

REACTIONS (25)
  - Headache [Unknown]
  - Seasonal allergy [Unknown]
  - Alopecia [Unknown]
  - Menstrual disorder [Unknown]
  - Acne [Unknown]
  - Blood pressure increased [Unknown]
  - Diarrhoea [Recovered/Resolved]
  - Pain in extremity [Unknown]
  - Arthralgia [Unknown]
  - Off label use [Unknown]
  - Product use issue [Unknown]
  - Nasal congestion [Unknown]
  - Weight decreased [Unknown]
  - Urinary tract disorder [Unknown]
  - Fatigue [Unknown]
  - Pallor [Unknown]
  - Yellow skin [Unknown]
  - Chromaturia [Unknown]
  - Musculoskeletal pain [Unknown]
  - Dry skin [Unknown]
  - Blood glucose decreased [Unknown]
  - Decreased appetite [Unknown]
  - Rash macular [Unknown]
  - Epistaxis [Recovered/Resolved]
  - Hypertension [Unknown]
